FAERS Safety Report 8290889-0 (Version None)
Quarter: 2012Q2

REPORT INFORMATION
  Report Type: 
  Country: None (occurrence: None)
  Receive Date: 20120417
  Receipt Date: 20110810
  Transmission Date: 20120825
  Serious: No
  Sender: FDA-Public Use
  Company Number: US-ASTRAZENECA-2011SE48099

PATIENT
  Age: 49 Year
  Sex: Female
  Weight: 57.6 kg

DRUGS (11)
  1. TRAZODONE HCL [Concomitant]
     Indication: SLEEP DISORDER
  2. MIRALAX [Concomitant]
  3. PREMARIN [Concomitant]
  4. GABAPENTIN [Concomitant]
  5. NEXIUM [Suspect]
     Route: 048
     Dates: start: 20101228
  6. SYNTHROID [Concomitant]
     Indication: HYPOTHYROIDISM
  7. MIRTAZAPINE [Concomitant]
  8. ATIVAN [Concomitant]
  9. BUSPAR [Concomitant]
  10. OXYCONTIN [Concomitant]
  11. TEMOVATE [Concomitant]

REACTIONS (2)
  - NASAL CONGESTION [None]
  - FIBROMYALGIA [None]
